FAERS Safety Report 20145882 (Version 1)
Quarter: 2021Q4

REPORT INFORMATION
  Report Type: Other
  Country: CA (occurrence: CA)
  Receive Date: 20211203
  Receipt Date: 20211203
  Transmission Date: 20220303
  Serious: Yes (Other)
  Sender: FDA-Public Use
  Company Number: CA-APOTEX-2021AP045990

PATIENT
  Age: 24 Year
  Sex: Female

DRUGS (2)
  1. LORAZEPAM [Suspect]
     Active Substance: LORAZEPAM
     Indication: Anxiety
     Dosage: UNK
     Route: 048
  2. CITALOPRAM [Suspect]
     Active Substance: CITALOPRAM HYDROBROMIDE
     Indication: Anxiety
     Dosage: UNK
     Route: 048

REACTIONS (7)
  - Hepatic pain [Unknown]
  - Illness [Unknown]
  - Loss of consciousness [Unknown]
  - Memory impairment [Unknown]
  - Nasal congestion [Unknown]
  - Pulmonary pain [Unknown]
  - Visual impairment [Unknown]
